FAERS Safety Report 7443362-3 (Version None)
Quarter: 2011Q2

REPORT INFORMATION
  Report Type: 
  Country: None (occurrence: None)
  Receive Date: 20110428
  Receipt Date: 20110421
  Transmission Date: 20111010
  Serious: Yes (Death, Life-Threatening, Disabling)
  Sender: FDA-Public Use
  Company Number: PHHY2009JP15151

PATIENT
  Sex: Male
  Weight: 65 kg

DRUGS (13)
  1. DEPAS [Concomitant]
     Dosage: 0.5 DF, UNK
     Route: 048
     Dates: start: 20080709
  2. ITRIZOLE [Concomitant]
     Dosage: 10 ML, UNK
     Route: 048
     Dates: start: 20080709
  3. TETRAMIDE [Concomitant]
     Dosage: 10 MG, UNK
     Route: 048
  4. MEXILETINE HYDROCHLORIDE [Concomitant]
     Dosage: 300 MG, UNK
     Route: 048
     Dates: start: 20080709
  5. MAGNESIUM OXIDE [Concomitant]
     Dosage: 1000 MG, UNK
     Route: 048
     Dates: start: 20080709
  6. BENET [Concomitant]
     Route: 048
     Dates: start: 20081001
  7. EXJADE [Suspect]
     Indication: IRON OVERLOAD
     Dosage: 875 MG, DAILY
     Route: 048
     Dates: start: 20081023, end: 20081210
  8. ASPIRIN [Concomitant]
     Dosage: 200 MG, UNK
     Route: 048
     Dates: start: 20080709
  9. TAKEPRON [Concomitant]
     Dosage: 15 MG, UNK
     Route: 048
     Dates: start: 20080709
  10. DIAZEPAM [Concomitant]
     Dosage: 3 MG, UNK
     Route: 048
     Dates: start: 20081112, end: 20081125
  11. DIOVAN [Concomitant]
     Indication: HYPERTENSION
     Dosage: 40 MG, UNK
     Route: 048
     Dates: start: 20080709
  12. PAXIL [Concomitant]
     Dosage: 10 MG, UNK
     Route: 048
     Dates: start: 20081125
  13. TICLOPIDINE HYDROCHLORIDE [Concomitant]
     Dosage: 200 MG, UNK
     Dates: start: 20080709

REACTIONS (6)
  - SEPTIC SHOCK [None]
  - SEPSIS [None]
  - GAMMA-GLUTAMYLTRANSFERASE INCREASED [None]
  - PSEUDOMONAS INFECTION [None]
  - BLOOD CREATININE INCREASED [None]
  - CATHETER SITE INFECTION [None]
